FAERS Safety Report 20263771 (Version 1)
Quarter: 2021Q4

REPORT INFORMATION
  Report Type: Spontaneous
  Country: US (occurrence: None)
  Receive Date: 20211230
  Receipt Date: 20211230
  Transmission Date: 20220303
  Serious: Yes (Hospitalization)
  Sender: FDA-Public Use
  Company Number: None

PATIENT
  Age: 47 Year
  Sex: Female

DRUGS (1)
  1. CASIRIVIMAB\IMDEVIMAB [Suspect]
     Active Substance: CASIRIVIMAB\IMDEVIMAB
     Indication: COVID-19
     Route: 058
     Dates: start: 20211215, end: 20211215

REACTIONS (11)
  - Emphysematous pyelonephritis [None]
  - Adrenal mass [None]
  - Pain [None]
  - Back pain [None]
  - Leukocytosis [None]
  - Culture urine positive [None]
  - Sepsis [None]
  - Flank pain [None]
  - Urinary tract obstruction [None]
  - Bacterial infection [None]
  - Pyelonephritis acute [None]

NARRATIVE: CASE EVENT DATE: 20211219
